FAERS Safety Report 12290018 (Version 2)
Quarter: 2016Q2

REPORT INFORMATION
  Report Type: Spontaneous
  Country: US (occurrence: US)
  Receive Date: 20160421
  Receipt Date: 20160525
  Transmission Date: 20160815
  Serious: No
  Sender: FDA-Public Use
  Company Number: US-GLAXOSMITHKLINE-US2016049683

PATIENT
  Age: 76 Year
  Sex: Female
  Weight: 101.13 kg

DRUGS (3)
  1. ASPIRIN. [Concomitant]
     Active Substance: ASPIRIN
  2. TANZEUM [Suspect]
     Active Substance: ALBIGLUTIDE
     Indication: TYPE 2 DIABETES MELLITUS
     Dosage: 30 MG, WE
     Route: 042
     Dates: start: 20160224
  3. PLAVIX [Concomitant]
     Active Substance: CLOPIDOGREL BISULFATE

REACTIONS (2)
  - Injection site reaction [Recovering/Resolving]
  - Haematoma [Recovering/Resolving]

NARRATIVE: CASE EVENT DATE: 201603
